FAERS Safety Report 22064311 (Version 1)
Quarter: 2023Q1

REPORT INFORMATION
  Report Type: Spontaneous
  Country: CN (occurrence: CN)
  Receive Date: 20230306
  Receipt Date: 20230306
  Transmission Date: 20230417
  Serious: Yes (Life-Threatening)
  Sender: FDA-Public Use
  Company Number: CN-PFIZER INC-PV202300040249

PATIENT
  Age: 61 Year
  Sex: Male
  Weight: 71 kg

DRUGS (1)
  1. LINEZOLID [Suspect]
     Active Substance: LINEZOLID
     Indication: Pneumonia
     Dosage: 0.6 G, 1X/DAY
     Route: 041
     Dates: start: 20230219, end: 20230219

REACTIONS (5)
  - Dyspnoea [Recovering/Resolving]
  - Erythema [Recovering/Resolving]
  - Suffocation feeling [Recovering/Resolving]
  - Drug hypersensitivity [Recovering/Resolving]
  - Off label use [Unknown]

NARRATIVE: CASE EVENT DATE: 20230219
